FAERS Safety Report 21542507 (Version 1)
Quarter: 2022Q4

REPORT INFORMATION
  Report Type: Spontaneous
  Country: US (occurrence: US)
  Receive Date: 20221102
  Receipt Date: 20221102
  Transmission Date: 20230112
  Serious: No
  Sender: FDA-Public Use
  Company Number: US-JUBILANT CADISTA PHARMACEUTICALS INC.-2021JUB00373

PATIENT
  Sex: Female
  Weight: 71.655 kg

DRUGS (12)
  1. LOSARTAN POTASSIUM [Suspect]
     Active Substance: LOSARTAN POTASSIUM
     Indication: Hypertension
     Dosage: 100 MG, 1X/DAY
     Route: 048
  2. AMLODIPINE [Concomitant]
     Active Substance: AMLODIPINE BESYLATE
  3. TRICOR [Concomitant]
     Active Substance: FENOFIBRATE
  4. PAROXETINE [Concomitant]
     Active Substance: PAROXETINE
  5. PRAZOSIN [Concomitant]
     Active Substance: PRAZOSIN
  6. SINGULAIR [Concomitant]
     Active Substance: MONTELUKAST SODIUM
  7. METOPROLOL SUCCINATE [Concomitant]
     Active Substance: METOPROLOL SUCCINATE
  8. CETIRIZINE [Concomitant]
     Active Substance: CETIRIZINE HYDROCHLORIDE
  9. OMEPRAZOLE [Concomitant]
     Active Substance: OMEPRAZOLE
  10. FISH OIL [Concomitant]
     Active Substance: FISH OIL
  11. PROBIOTICS NOS [Concomitant]
     Active Substance: PROBIOTICS NOS
  12. VITAMINS [Concomitant]
     Active Substance: VITAMINS

REACTIONS (4)
  - Large intestine polyp [Not Recovered/Not Resolved]
  - Thyroid mass [Not Recovered/Not Resolved]
  - Recalled product administered [Not Recovered/Not Resolved]
  - Product impurity [Unknown]
